FAERS Safety Report 21343217 (Version 1)
Quarter: 2022Q3

REPORT INFORMATION
  Report Type: Spontaneous
  Country: CH (occurrence: None)
  Receive Date: 20220916
  Receipt Date: 20220916
  Transmission Date: 20221027
  Serious: Yes (Other)
  Sender: FDA-Public Use
  Company Number: CH-ROCHE-3176404

PATIENT
  Sex: Female

DRUGS (5)
  1. HERCEPTIN [Suspect]
     Active Substance: TRASTUZUMAB
     Indication: Adenocarcinoma of the cervix
     Dosage: MONO-THERAPY
     Route: 065
     Dates: start: 201905, end: 202108
  2. HERCEPTIN [Suspect]
     Active Substance: TRASTUZUMAB
     Dosage: IN COMBINATION WITH CARBOPLATIN / PACLITAXEL
     Route: 065
     Dates: start: 20210831, end: 20211214
  3. HERCEPTIN [Suspect]
     Active Substance: TRASTUZUMAB
     Dosage: MONO-THERAPY
     Route: 065
     Dates: start: 202201, end: 202208
  4. PACLITAXEL [Suspect]
     Active Substance: PACLITAXEL
     Indication: Adenocarcinoma of the cervix
     Route: 065
     Dates: start: 20210831, end: 20211214
  5. CARBOPLATIN [Suspect]
     Active Substance: CARBOPLATIN
     Indication: Adenocarcinoma of the cervix
     Route: 065
     Dates: start: 20210831, end: 20211214

REACTIONS (2)
  - Off label use [Unknown]
  - Disease progression [Unknown]
